FAERS Safety Report 5818495-5 (Version None)
Quarter: 2008Q3

REPORT INFORMATION
  Report Type: 
  Country: None (occurrence: None)
  Receive Date: 20080717
  Receipt Date: 20080707
  Transmission Date: 20090109
  Serious: Yes (Hospitalization)
  Sender: FDA-Public Use
  Company Number: 236463J08USA

PATIENT
  Age: 52 Year
  Sex: Female
  Weight: 68.0396 kg

DRUGS (2)
  1. REBIF [Suspect]
     Indication: MULTIPLE SCLEROSIS
     Dosage: 44 MCG, 3 IN 1 WEEKS, SUBCUTANEOUS
     Route: 058
     Dates: start: 20071105, end: 20080604
  2. PREVACID [Concomitant]

REACTIONS (3)
  - GENITAL HAEMORRHAGE [None]
  - METASTASES TO LYMPH NODES [None]
  - OVARIAN CANCER METASTATIC [None]
